FAERS Safety Report 9104173 (Version 1)
Quarter: 2013Q1

REPORT INFORMATION
  Report Type: Spontaneous
  Country: SE (occurrence: SE)
  Receive Date: 20130219
  Receipt Date: 20130219
  Transmission Date: 20140127
  Serious: Yes (Disabling)
  Sender: FDA-Public Use
  Company Number: SE-PFIZER INC-2013057540

PATIENT
  Age: 82 Year
  Sex: Female

DRUGS (3)
  1. DIFLUCAN [Suspect]
     Indication: UPPER RESPIRATORY FUNGAL INFECTION
     Dosage: 100 MG, 2X/DAY
     Route: 048
     Dates: start: 20130107, end: 20130118
  2. PANTOPRAZOLE [Suspect]
     Dosage: 20 MG, 1X/DAY
     Route: 048
     Dates: start: 20130102, end: 20130118
  3. SPIRIVA RESPIMAT [Concomitant]
     Dosage: 2.5 UG, UNKNOWN FREQUENCY

REACTIONS (8)
  - Abdominal pain [Not Recovered/Not Resolved]
  - Muscle spasms [Not Recovered/Not Resolved]
  - Dizziness [Not Recovered/Not Resolved]
  - Dry mouth [Not Recovered/Not Resolved]
  - Dyspnoea [Not Recovered/Not Resolved]
  - Headache [Not Recovered/Not Resolved]
  - Somnolence [Not Recovered/Not Resolved]
  - Dysgeusia [Not Recovered/Not Resolved]
